FAERS Safety Report 15995147 (Version 2)
Quarter: 2020Q1

REPORT INFORMATION
  Report Type: Report from Study
  Country: US (occurrence: US)
  Receive Date: 20190222
  Receipt Date: 20200304
  Transmission Date: 20200409
  Serious: Yes (Death, Hospitalization, Congenital Anomaly)
  Sender: FDA-Public Use
  Company Number: PHHO2017US008442

PATIENT
  Age: 55 Year
  Sex: Male

DRUGS (16)
  1. INC424A [Suspect]
     Active Substance: RUXOLITINIB
     Dosage: 5 MG, BID
     Route: 048
     Dates: start: 20170617, end: 20170615
  2. METHYLPREDNISOLONE ACETATE. [Suspect]
     Active Substance: METHYLPREDNISOLONE ACETATE
     Indication: ACUTE GRAFT VERSUS HOST DISEASE
     Dosage: 40 MG, QD
     Route: 042
     Dates: start: 20170427
  3. PREDNISONE TABLETS USP [Suspect]
     Active Substance: PREDNISONE
     Dosage: 40 MG, QD
     Route: 048
     Dates: start: 20170611, end: 20170611
  4. INC424A [Suspect]
     Active Substance: RUXOLITINIB
     Indication: ACUTE GRAFT VERSUS HOST DISEASE
     Dosage: 5 MG, BID
     Route: 048
     Dates: start: 20170427, end: 20170511
  5. PREDNISONE TABLETS USP [Suspect]
     Active Substance: PREDNISONE
     Dosage: 50 MG, QD
     Route: 048
     Dates: start: 20170510, end: 20170510
  6. PREDNISONE TABLETS USP [Suspect]
     Active Substance: PREDNISONE
     Dosage: 40 MG, QD
     Route: 048
     Dates: start: 20170614, end: 20170614
  7. METHYLPREDNISOLONE ACETATE. [Suspect]
     Active Substance: METHYLPREDNISOLONE ACETATE
     Dosage: 40 MG, QD
     Route: 042
     Dates: start: 20170612, end: 20170613
  8. INC424A [Suspect]
     Active Substance: RUXOLITINIB
     Dosage: 5 MG, QPM
     Route: 048
     Dates: start: 20170524, end: 20170524
  9. PREDNISONE TABLETS USP [Suspect]
     Active Substance: PREDNISONE
     Indication: ACUTE GRAFT VERSUS HOST DISEASE
     Dosage: 60 MG, QD
     Route: 048
     Dates: start: 20170427, end: 20170509
  10. PREDNISONE TABLETS USP [Suspect]
     Active Substance: PREDNISONE
     Dosage: 40 MG, QD
     Route: 048
     Dates: start: 20170605, end: 20170707
  11. METHYLPREDNISOLONE ACETATE. [Suspect]
     Active Substance: METHYLPREDNISOLONE ACETATE
     Dosage: 40 MG, QD
     Route: 042
     Dates: start: 20170615
  12. INC424A [Suspect]
     Active Substance: RUXOLITINIB
     Dosage: 5 MG, BID
     Route: 048
     Dates: start: 20170516, end: 20170522
  13. PREDNISONE TABLETS USP [Suspect]
     Active Substance: PREDNISONE
     Dosage: 50 MG, QD
     Route: 048
     Dates: start: 20170514, end: 20170604
  14. PREDNISONE TABLETS USP [Suspect]
     Active Substance: PREDNISONE
     Dosage: 60 MG, QD
     Route: 048
     Dates: start: 20170608, end: 20170610
  15. INC424A [Suspect]
     Active Substance: RUXOLITINIB
     Dosage: 5 MG, BID
     Route: 048
     Dates: start: 20170525, end: 20170611
  16. INC424A [Suspect]
     Active Substance: RUXOLITINIB
     Dosage: 5 MG, QPM
     Route: 048
     Dates: start: 20170613, end: 20170613

REACTIONS (2)
  - Pulmonary haemorrhage [Fatal]
  - Eye disorder [Not Recovered/Not Resolved]

NARRATIVE: CASE EVENT DATE: 20170508
